FAERS Safety Report 5167658-3 (Version None)
Quarter: 2006Q4

REPORT INFORMATION
  Report Type: 
  Country: None (occurrence: None)
  Receive Date: 20061201
  Receipt Date: 20061201
  Transmission Date: 20070319
  Serious: Yes (Hospitalization)
  Sender: FDA-Public Use
  Company Number: None

PATIENT
  Age: 72 Year
  Sex: Female

DRUGS (1)
  1. TAXUS EXPRESS 2 STENT-MONORAIL BOSTON SCIENTIFIC [Suspect]
     Indication: CATHETERISATION CARDIAC
     Dates: start: 20061129, end: 20061129

REACTIONS (2)
  - DEVICE BREAKAGE [None]
  - PROCEDURAL COMPLICATION [None]
